FAERS Safety Report 8995078 (Version 1)
Quarter: 2013Q1

REPORT INFORMATION
  Report Type: Spontaneous
  Country: CA (occurrence: CA)
  Receive Date: 20130102
  Receipt Date: 20130102
  Transmission Date: 20140127
  Serious: Yes (Hospitalization, Other)
  Sender: FDA-Public Use
  Company Number: CA-B.I. PHARMACEUTICALS,INC./RIDGEFIELD-2012-CN-02666CN

PATIENT
  Age: 84 Year
  Sex: Male
  Weight: 62 kg

DRUGS (12)
  1. PRADAX [Suspect]
     Dosage: 220 MG
     Route: 048
  2. ALENDRONATE [Concomitant]
  3. ATORVASTATIN CALCIUM [Concomitant]
  4. CALCIUM CARBONATE [Concomitant]
  5. ASA [Concomitant]
  6. NITROGLYCERIN [Concomitant]
  7. PERINDOPRIL [Concomitant]
  8. RISEDRONATE SODIUM [Concomitant]
  9. SPIRONOLACTONE [Concomitant]
  10. TIMOPTIC [Concomitant]
  11. VITAMIN D [Concomitant]
  12. XALATAN [Concomitant]

REACTIONS (6)
  - Diverticulum [Unknown]
  - Gastrointestinal haemorrhage [Unknown]
  - Large intestinal haemorrhage [Unknown]
  - Rectal haemorrhage [Unknown]
  - Rectal ulcer [Unknown]
  - Thrombosis [Unknown]
